FAERS Safety Report 5149277-8 (Version None)
Quarter: 2006Q4

REPORT INFORMATION
  Report Type: 
  Country: None (occurrence: None)
  Receive Date: 20061113
  Receipt Date: 20051024
  Transmission Date: 20070319
  Serious: No
  Sender: FDA-Public Use
  Company Number: 422326

PATIENT
  Age: 93 Year
  Sex: Female
  Weight: 42.7 kg

DRUGS (18)
  1. COREG [Suspect]
     Dosage: 12.5MG TWICE PER DAY
     Route: 048
     Dates: start: 20050501
  2. ZYRTEC [Concomitant]
     Route: 065
  3. UNKNOWN MEDICATION [Concomitant]
  4. ZOLOFT [Concomitant]
  5. VICODIN [Concomitant]
     Route: 065
  6. FAMOTIDINE [Concomitant]
     Route: 065
  7. KLOR-CON [Concomitant]
     Route: 065
  8. ZAROXOLYN [Concomitant]
     Dosage: 2.5MG TWO TIMES PER WEEK
     Route: 065
  9. THEO-24 [Concomitant]
     Dosage: 300MG PER DAY
     Route: 065
  10. FOSAMAX [Concomitant]
     Dosage: 70MG WEEKLY
     Route: 065
  11. PAXIL [Concomitant]
     Dosage: 10MG PER DAY
     Route: 048
  12. ALBUTEROL [Concomitant]
     Route: 065
  13. NEURONTIN [Concomitant]
     Route: 065
  14. LORAZEPAM [Concomitant]
     Dosage: .25MG AS REQUIRED
     Route: 065
  15. LACTAID [Concomitant]
     Route: 065
  16. ALDACTONE [Concomitant]
     Route: 065
  17. LASIX [Concomitant]
     Dosage: 60MG PER DAY
     Route: 065
  18. LANOXIN [Concomitant]
     Dosage: .125MG PER DAY
     Route: 065

REACTIONS (1)
  - DYSPNOEA [None]
